FAERS Safety Report 24845565 (Version 2)
Quarter: 2025Q1

REPORT INFORMATION
  Report Type: Report from Study
  Country: CO (occurrence: CO)
  Receive Date: 20250115
  Receipt Date: 20250228
  Transmission Date: 20250408
  Serious: Yes (Hospitalization, Other)
  Sender: AMGEN
  Company Number: CO-AMGEN-COLSL2024178174

PATIENT
  Age: 49 Year
  Sex: Male

DRUGS (3)
  1. VECTIBIX [Suspect]
     Active Substance: PANITUMUMAB
     Indication: Colorectal cancer metastatic
     Dosage: 350 MILLIGRAM, Q2WK
     Route: 042
     Dates: start: 20240828
  2. VECTIBIX [Suspect]
     Active Substance: PANITUMUMAB
     Dosage: UNK, Q2WK, BIWEEKLY, DOSE DECREASED
     Route: 040
  3. VECTIBIX [Suspect]
     Active Substance: PANITUMUMAB
     Dosage: 350 MILLIGRAM, Q2WK
     Route: 042
     Dates: end: 20241202

REACTIONS (6)
  - Cancer pain [Not Recovered/Not Resolved]
  - Asthenia [Recovering/Resolving]
  - Diarrhoea [Recovering/Resolving]
  - Decreased appetite [Recovering/Resolving]
  - Discouragement [Recovering/Resolving]
  - Refusal of treatment by patient [Unknown]

NARRATIVE: CASE EVENT DATE: 20241202
